FAERS Safety Report 5120263-7 (Version None)
Quarter: 2006Q4

REPORT INFORMATION
  Report Type: 
  Country: None (occurrence: None)
  Receive Date: 20061004
  Receipt Date: 20060921
  Transmission Date: 20070319
  Serious: Yes (Hospitalization)
  Sender: FDA-Public Use
  Company Number: HQWYE112425SEP06

PATIENT
  Sex: Male

DRUGS (5)
  1. ENBREL [Suspect]
     Indication: RHEUMATOID ARTHRITIS
     Route: 058
     Dates: start: 20060510, end: 20060824
  2. ENBREL [Suspect]
     Route: 058
     Dates: start: 20060710, end: 20060811
  3. ENBREL [Suspect]
     Route: 058
     Dates: start: 20060818, end: 20060824
  4. BASEN [Concomitant]
     Dosage: UNKNOWN
     Route: 048
  5. ACTOS [Concomitant]
     Dosage: UNKNOWN
     Route: 048

REACTIONS (3)
  - ALANINE AMINOTRANSFERASE INCREASED [None]
  - ASPARTATE AMINOTRANSFERASE INCREASED [None]
  - MALAISE [None]
